FAERS Safety Report 7772422-2 (Version None)
Quarter: 2011Q3

REPORT INFORMATION
  Report Type: 
  Country: None (occurrence: None)
  Receive Date: 20110922
  Receipt Date: 20110912
  Transmission Date: 20111222
  Serious: Yes (Hospitalization)
  Sender: FDA-Public Use
  Company Number: PHHY2011FR82081

PATIENT
  Sex: Male

DRUGS (16)
  1. FLUOROURACIL [Suspect]
     Indication: NEOPLASM MALIGNANT
     Dosage: 1485 MG, QD
     Route: 065
     Dates: start: 20110711, end: 20110715
  2. PREDNISOLONE [Concomitant]
     Dosage: 50 MG/DAY
     Dates: start: 20110710, end: 20110712
  3. NEULASTA [Concomitant]
     Dosage: 6 MG, UNK
     Dates: start: 20110719
  4. DOCETAXEL [Suspect]
     Route: 065
     Dates: start: 20110802
  5. CISPLATIN [Suspect]
     Route: 065
     Dates: start: 20110802
  6. EMEND [Concomitant]
     Dosage: 125 MG, UNK
     Dates: start: 20110711
  7. EMEND [Concomitant]
     Dosage: 80 MG, UNK
     Dates: start: 20110712
  8. OXYCODONE HCL [Concomitant]
     Dosage: 5 MG, PRN
  9. OXYCONTIN [Concomitant]
     Dosage: 10 MG, BID
  10. METHYLPREDNISOLONE [Concomitant]
     Dosage: 204 MG, UNK
     Dates: start: 20110711
  11. ONDANSETRON [Concomitant]
     Dosage: 8 MG, UNK
     Dates: start: 20110711
  12. EMEND [Concomitant]
     Dosage: 80 MG, UNK
     Dates: start: 20110713
  13. LANSOPRAZOLE [Concomitant]
     Dosage: 30 MG/DAY
  14. DOCETAXEL [Suspect]
     Indication: NEOPLASM MALIGNANT
     Dosage: 148 MG, UNK
     Route: 042
     Dates: start: 20110711
  15. CISPLATIN [Suspect]
     Indication: NEOPLASM MALIGNANT
     Dosage: 148 MG, UNK
     Route: 065
     Dates: start: 20110711
  16. PHENOXYMETHYL PENICILLIN [Concomitant]
     Dosage: 3000000 IU/DAY

REACTIONS (9)
  - PERIPHERAL ARTERIAL OCCLUSIVE DISEASE [None]
  - ANGINA PECTORIS [None]
  - EPISTAXIS [None]
  - BUNDLE BRANCH BLOCK RIGHT [None]
  - CORONARY ARTERY DISEASE [None]
  - ARTERIOSCLEROSIS [None]
  - CHEST PAIN [None]
  - FIBRIN D DIMER INCREASED [None]
  - HIGH DENSITY LIPOPROTEIN DECREASED [None]
